FAERS Safety Report 6879426-2 (Version None)
Quarter: 2010Q3

REPORT INFORMATION
  Report Type: 
  Country: None (occurrence: None)
  Receive Date: 20100728
  Receipt Date: 20100716
  Transmission Date: 20110219
  Serious: Yes (Other)
  Sender: FDA-Public Use
  Company Number: PHHY2010JP14719

PATIENT
  Sex: Female

DRUGS (3)
  1. GLEEVEC [Suspect]
     Indication: CHRONIC MYELOID LEUKAEMIA
     Dosage: UNK
     Route: 048
     Dates: start: 20071101, end: 20090618
  2. DASATINIB [Concomitant]
     Indication: CHRONIC MYELOID LEUKAEMIA
     Dosage: 100 MG, UNK
     Route: 048
     Dates: start: 20090618, end: 20090618
  3. LENDORMIN [Concomitant]
     Dosage: 0.25 MG, UNK

REACTIONS (2)
  - BONE MARROW FAILURE [None]
  - DRUG INEFFECTIVE [None]
